FAERS Safety Report 8743555 (Version 2)
Quarter: 2012Q4

REPORT INFORMATION
  Report Type: 
  Country: ES (occurrence: ES)
  Receive Date: 20120824
  Receipt Date: 20120830
  Transmission Date: 20130627
  Serious: Yes (Hospitalization, Other)
  Sender: FDA-Public Use
  Company Number: ES-ABBOTT-12P-144-0969434-00

PATIENT
  Age: 36 Year
  Sex: Female

DRUGS (7)
  1. RITONAVIR [Suspect]
     Indication: HIV INFECTION
     Route: 048
     Dates: start: 201008
  2. DARUNAVIR [Suspect]
     Indication: HIV INFECTION
     Route: 048
     Dates: start: 201008
  3. ABACAVIR [Suspect]
     Indication: HIV INFECTION
     Route: 048
     Dates: start: 201208
  4. ETRAVIRINE [Suspect]
     Indication: HIV INFECTION
     Route: 048
     Dates: start: 201008
  5. RALTEGRAVIR [Suspect]
     Indication: HIV INFECTION
     Route: 048
     Dates: start: 201008
  6. PENTAMIDINE [Concomitant]
     Indication: PROPHYLACTIC CHEMOTHERAPY
  7. CLONAZEPAM [Concomitant]
     Indication: PRODUCT USED FOR UNKNOWN INDICATION
     Route: 048

REACTIONS (5)
  - Posterior reversible encephalopathy syndrome [Recovering/Resolving]
  - Depressed level of consciousness [Recovered/Resolved]
  - Hypertension [Recovered/Resolved]
  - Nausea [Unknown]
  - Abdominal pain [Unknown]
